FAERS Safety Report 19890248 (Version 3)
Quarter: 2021Q4

REPORT INFORMATION
  Report Type: Report from Study
  Country: ES (occurrence: None)
  Receive Date: 20210928
  Receipt Date: 20211221
  Transmission Date: 20220303
  Serious: Yes (Death, Other)
  Sender: FDA-Public Use
  Company Number: ES-ROCHE-2912209

PATIENT

DRUGS (17)
  1. TOCILIZUMAB [Suspect]
     Active Substance: TOCILIZUMAB
     Indication: Cytokine storm
     Dosage: FIRST DOSE 600 MG AND SECOND DOSE 600 MG IN PATIENTS WEIGHING GREATER THAN OR EQUAL TO 80 KG OR FIRS
     Route: 042
     Dates: start: 20200404
  2. TOCILIZUMAB [Suspect]
     Active Substance: TOCILIZUMAB
     Indication: COVID-19 pneumonia
  3. COLISTIN [Concomitant]
     Active Substance: COLISTIN
     Indication: Superinfection bacterial
     Dates: start: 20200507, end: 20200510
  4. GENTAMICIN [Concomitant]
     Active Substance: GENTAMICIN
     Indication: Superinfection bacterial
     Dates: start: 20200503, end: 20200510
  5. MEROPENEM [Concomitant]
     Active Substance: MEROPENEM
     Indication: Superinfection bacterial
     Dates: start: 20200430, end: 20200510
  6. VANCOMYCIN [Concomitant]
     Active Substance: VANCOMYCIN
     Indication: Superinfection bacterial
     Dates: start: 20200505, end: 20200510
  7. ACETYLCYSTEINE [Concomitant]
     Active Substance: ACETYLCYSTEINE
     Indication: COVID-19
     Dates: start: 20200504, end: 20200510
  8. ENOXAPARIN [Concomitant]
     Active Substance: ENOXAPARIN
     Indication: Thrombosis prophylaxis
     Dates: start: 20200330, end: 20200510
  9. IPRATROPIUM BROMIDE [Concomitant]
     Active Substance: IPRATROPIUM BROMIDE
     Indication: COVID-19
     Dates: start: 20200331, end: 20200510
  10. OMEPRAZOLE [Concomitant]
     Active Substance: OMEPRAZOLE
     Indication: Gastritis prophylaxis
     Dates: start: 20200401, end: 20201005
  11. NICARDIPINE [Concomitant]
     Active Substance: NICARDIPINE
     Indication: Hypertension
     Dates: start: 20200425, end: 20200427
  12. LEVOFLOXACIN [Concomitant]
     Active Substance: LEVOFLOXACIN
     Indication: Superinfection bacterial
     Dates: start: 20200411, end: 20200417
  13. VORICONAZOLE [Concomitant]
     Active Substance: VORICONAZOLE
     Dates: start: 20200411, end: 20200424
  14. LINEZOLID [Concomitant]
     Active Substance: LINEZOLID
     Indication: Superinfection bacterial
     Dates: start: 20200409, end: 20200424
  15. CIPROFLOXACIN [Concomitant]
     Active Substance: CIPROFLOXACIN
     Indication: Superinfection bacterial
     Dates: start: 20200409, end: 20200411
  16. ALBUTEROL [Concomitant]
     Active Substance: ALBUTEROL
     Indication: COVID-19
     Dates: start: 20200331, end: 20200510
  17. METHYLPREDNISOLONE [Concomitant]
     Active Substance: METHYLPREDNISOLONE
     Indication: COVID-19
     Dates: start: 20200401, end: 20200510

REACTIONS (2)
  - Acute respiratory distress syndrome [Fatal]
  - Anaemia [Recovered/Resolved]

NARRATIVE: CASE EVENT DATE: 20200501
